FAERS Safety Report 24759665 (Version 1)
Quarter: 2024Q4

REPORT INFORMATION
  Report Type: Spontaneous
  Country: US (occurrence: US)
  Receive Date: 20241220
  Receipt Date: 20241220
  Transmission Date: 20250115
  Serious: No
  Sender: SANOFI AVENTIS
  Company Number: US-SA-2024SA375437

PATIENT
  Sex: Female
  Weight: 69.09 kg

DRUGS (9)
  1. DUPIXENT [Suspect]
     Active Substance: DUPILUMAB
     Indication: Dermatitis atopic
     Dosage: 300 MG, QOW
     Route: 058
  2. MAGNESIUM [Concomitant]
     Active Substance: MAGNESIUM
  3. MELATONIN [Concomitant]
     Active Substance: MELATONIN
  4. VITAMINS [Concomitant]
     Active Substance: VITAMINS
     Dosage: UNK, QD
  5. EZETIMIBE [Concomitant]
     Active Substance: EZETIMIBE
  6. LEVOTHYROXINE SODIUM [Concomitant]
     Active Substance: LEVOTHYROXINE SODIUM
  7. AMLODIPINE BESYLATE [Concomitant]
     Active Substance: AMLODIPINE BESYLATE
  8. BENZONATATE [Concomitant]
     Active Substance: BENZONATATE
  9. LAGEVRIO [Concomitant]
     Active Substance: MOLNUPIRAVIR

REACTIONS (1)
  - Dry skin [Not Recovered/Not Resolved]
